FAERS Safety Report 17099758 (Version 1)
Quarter: 2019Q4

REPORT INFORMATION
  Report Type: Spontaneous
  Country: IT (occurrence: IT)
  Receive Date: 20191202
  Receipt Date: 20191202
  Transmission Date: 20200122
  Serious: Yes (Hospitalization, Other)
  Sender: FDA-Public Use
  Company Number: IT-FRESENIUS KABI-FK201913204

PATIENT
  Age: 56 Year
  Sex: Female

DRUGS (5)
  1. MESNA. [Suspect]
     Active Substance: MESNA
     Indication: NEUROFIBROSARCOMA
     Route: 065
     Dates: start: 201607
  2. DOXORUBICIN [Suspect]
     Active Substance: DOXORUBICIN
     Indication: NEUROFIBROSARCOMA
     Route: 065
     Dates: start: 201607
  3. ZOLEDRONIC ACID (MANUFACTURER UNKNOWN) [Suspect]
     Active Substance: ZOLEDRONIC ACID
     Indication: NEUROFIBROSARCOMA
     Route: 065
  4. IFOSFAMIDE. [Suspect]
     Active Substance: IFOSFAMIDE
     Indication: NEUROFIBROSARCOMA
     Route: 065
  5. DACARBAZINE. [Suspect]
     Active Substance: DACARBAZINE
     Indication: NEUROFIBROSARCOMA
     Route: 065
     Dates: start: 201607

REACTIONS (2)
  - Device related infection [Recovered/Resolved]
  - Systemic bacterial infection [Recovered/Resolved]

NARRATIVE: CASE EVENT DATE: 20170415
